FAERS Safety Report 4623985-7 (Version None)
Quarter: 2005Q1

REPORT INFORMATION
  Report Type: 
  Country: None (occurrence: None)
  Receive Date: 20050331
  Receipt Date: 20041101
  Transmission Date: 20050727
  Serious: Yes (Other)
  Sender: FDA-Public Use
  Company Number: 1998011935-1

PATIENT
  Age: 73 Year
  Sex: Female
  Weight: 58.2 kg

DRUGS (4)
  1. NICODERM CQ [Suspect]
     Dosage: 21MG PER DAY
     Dates: start: 19980331, end: 19980503
  2. NICODERM CQ [Suspect]
     Dosage: 21MG PER DAY
     Route: 062
     Dates: start: 20010101, end: 20010101
  3. EFFEXOR [Concomitant]
     Route: 048
  4. PAIN MEDICATION [Concomitant]
     Route: 048

REACTIONS (6)
  - APPLICATION SITE REACTION [None]
  - BLADDER CANCER [None]
  - BLADDER DISCOMFORT [None]
  - BLADDER PAIN [None]
  - BLOOD URINE PRESENT [None]
  - PAIN [None]
